FAERS Safety Report 4754258-X (Version None)
Quarter: 2005Q3

REPORT INFORMATION
  Report Type: 
  Country: None (occurrence: None)
  Receive Date: 20050829
  Receipt Date: 20050819
  Transmission Date: 20060218
  Serious: Yes (Death, Other)
  Sender: FDA-Public Use
  Company Number: US-JNJFOC-20050203772

PATIENT
  Age: 42 Year
  Sex: Male

DRUGS (1)
  1. DURAGESIC-100 [Suspect]
     Indication: INTENTIONAL MISUSE
     Route: 048

REACTIONS (3)
  - DRUG ABUSER [None]
  - DRUG TOXICITY [None]
  - OVERDOSE [None]
